FAERS Safety Report 8910820 (Version 4)
Quarter: 2013Q3

REPORT INFORMATION
  Report Type: Report from Study
  Country: US (occurrence: US)
  Receive Date: 20121116
  Receipt Date: 20130927
  Transmission Date: 20140515
  Serious: Yes (Other)
  Sender: FDA-Public Use
  Company Number: US-BAYER-2012-114368

PATIENT
  Age: 75 Year
  Sex: Female

DRUGS (4)
  1. STIVARGA [Suspect]
     Indication: COLON CANCER STAGE IV
     Dosage: 40 MG, QID (4 TABLETS QD)
     Route: 048
     Dates: start: 20121024, end: 20121101
  2. STIVARGA [Suspect]
     Indication: COLON CANCER STAGE IV
     Dosage: 120 MG, QD
     Route: 048
     Dates: start: 20121112, end: 20121119
  3. STIVARGA [Suspect]
     Indication: COLON CANCER STAGE IV
     Dosage: 80 MG, QD
     Route: 048
     Dates: start: 20121120, end: 20130923
  4. BENICAR [Concomitant]
     Dosage: UNK
     Dates: start: 20120707, end: 20121206

REACTIONS (7)
  - Blood pressure increased [Recovered/Resolved]
  - Burning sensation [Not Recovered/Not Resolved]
  - Increased appetite [None]
  - Pain in extremity [None]
  - Asthenia [None]
  - Headache [None]
  - Blister [Not Recovered/Not Resolved]
